FAERS Safety Report 4724980-X (Version None)
Quarter: 2005Q3

REPORT INFORMATION
  Report Type: 
  Country: None (occurrence: None)
  Receive Date: 20050722
  Receipt Date: 20050714
  Transmission Date: 20060218
  Serious: Yes (Other)
  Sender: FDA-Public Use
  Company Number: 2005FR-00133

PATIENT
  Sex: Male

DRUGS (1)
  1. RANITIDINE [Suspect]
     Indication: PEPTIC ULCER
     Dates: start: 19840101, end: 20010101

REACTIONS (3)
  - DIABETES MELLITUS [None]
  - PANCREATIC INJURY [None]
  - PANCREATITIS CHRONIC [None]
